FAERS Safety Report 6107772-9 (Version None)
Quarter: 2009Q1

REPORT INFORMATION
  Report Type: 
  Country: None (occurrence: None)
  Receive Date: 20090309
  Receipt Date: 20090303
  Transmission Date: 20090719
  Serious: Yes (Hospitalization, Other)
  Sender: FDA-Public Use
  Company Number: B0557681A

PATIENT
  Age: 10 Year
  Sex: Male

DRUGS (4)
  1. RELENZA [Suspect]
     Indication: INFLUENZA
     Dosage: 10MG TWICE PER DAY
     Route: 055
     Dates: start: 20090202, end: 20090202
  2. PERIACTIN [Concomitant]
     Indication: UPPER RESPIRATORY TRACT INFECTION
     Dosage: 7.8MG PER DAY
     Route: 048
     Dates: start: 20090202, end: 20090202
  3. MUCODYNE [Concomitant]
     Indication: UPPER RESPIRATORY TRACT INFECTION
     Dosage: 780MG PER DAY
     Route: 048
     Dates: start: 20090202, end: 20090202
  4. ASVERIN [Concomitant]
     Indication: UPPER RESPIRATORY TRACT INFECTION
     Dosage: 78MG PER DAY
     Route: 048
     Dates: start: 20090202, end: 20090202

REACTIONS (6)
  - ALTERED STATE OF CONSCIOUSNESS [None]
  - BLOOD PRESSURE DECREASED [None]
  - CYANOSIS [None]
  - DIZZINESS [None]
  - DYSKINESIA [None]
  - PALLOR [None]
